FAERS Safety Report 9376215 (Version 1)
Quarter: 2013Q3

REPORT INFORMATION
  Report Type: Spontaneous
  Country: GB (occurrence: GB)
  Receive Date: 20130701
  Receipt Date: 20130701
  Transmission Date: 20140515
  Serious: Yes (Life-Threatening, Hospitalization, Other)
  Sender: FDA-Public Use
  Company Number: GB-AMGEN-GBRSP2013045322

PATIENT
  Age: 71 Year
  Sex: Male
  Weight: 70 kg

DRUGS (6)
  1. ENBREL [Suspect]
     Indication: RHEUMATOID ARTHRITIS
     Dosage: 50 MG, WEEKLY
     Route: 058
     Dates: start: 201203, end: 201302
  2. ENBREL [Suspect]
     Dosage: 50 MG, WEEKLY
     Route: 058
     Dates: start: 201303, end: 20130401
  3. ACETYLSALICYLIC ACID [Concomitant]
     Indication: RHEUMATOID ARTHRITIS
     Dosage: 75 MG, 1X/DAY
     Route: 048
     Dates: start: 2006, end: 20130401
  4. AZITHROMYCIN [Concomitant]
     Indication: RHEUMATOID ARTHRITIS
     Dosage: UNK
     Route: 048
     Dates: end: 20130401
  5. BRUFEN                             /00109201/ [Concomitant]
     Indication: RHEUMATOID ARTHRITIS
     Dosage: 400 MG, THREE TIMES PER WEEK
     Route: 048
     Dates: start: 2006, end: 20130401
  6. METHOTREXATE [Concomitant]
     Indication: RHEUMATOID ARTHRITIS
     Dosage: 20 MG, WEEKLY
     Route: 048
     Dates: start: 2008, end: 20130401

REACTIONS (3)
  - Pneumocystis jirovecii pneumonia [Recovering/Resolving]
  - Pneumonia [Recovering/Resolving]
  - Lower respiratory tract infection [Recovering/Resolving]
